FAERS Safety Report 9358608 (Version 3)
Quarter: 2013Q4

REPORT INFORMATION
  Report Type: Spontaneous
  Country: JP (occurrence: JP)
  Receive Date: 20130620
  Receipt Date: 20131115
  Transmission Date: 20140711
  Serious: Yes (Death, Hospitalization)
  Sender: FDA-Public Use
  Company Number: PHHY2013JP062125

PATIENT
  Age: 83 Year
  Sex: Male

DRUGS (4)
  1. RIFAMPICIN SANDOZ [Suspect]
     Indication: PULMONARY TUBERCULOSIS
     Route: 048
     Dates: start: 201208
  2. ISONIAZID [Suspect]
     Indication: PULMONARY TUBERCULOSIS
     Dates: start: 201208
  3. ETHAMBUTOL HYDROCHLORIDE [Suspect]
     Indication: PULMONARY TUBERCULOSIS
     Route: 048
     Dates: start: 201208
  4. PYRAZYNAMID [Suspect]
     Indication: PULMONARY TUBERCULOSIS
     Route: 048
     Dates: start: 201208

REACTIONS (10)
  - Septic shock [Fatal]
  - Hepatitis fulminant [Recovering/Resolving]
  - Decreased appetite [Unknown]
  - Diarrhoea [Unknown]
  - Vomiting [Unknown]
  - Altered state of consciousness [Unknown]
  - Asterixis [Unknown]
  - Urinary tract infection bacterial [Unknown]
  - Prothrombin level decreased [Unknown]
  - Hepatic enzyme increased [Unknown]
